FAERS Safety Report 17105184 (Version 1)
Quarter: 2019Q4

REPORT INFORMATION
  Report Type: Spontaneous
  Country: PK (occurrence: PK)
  Receive Date: 20191203
  Receipt Date: 20191203
  Transmission Date: 20200122
  Serious: Yes (Life-Threatening, Hospitalization)
  Sender: FDA-Public Use
  Company Number: PK-PFIZER INC-2019516772

PATIENT
  Age: 10 Month
  Sex: Female
  Weight: 6.6 kg

DRUGS (1)
  1. LOMOTIL [Suspect]
     Active Substance: ATROPINE SULFATE\DIPHENOXYLATE HYDROCHLORIDE
     Indication: DIARRHOEA
     Dosage: UNK, SINGLE, (A SINGLE ADULT DOSE OF TWO TABLETS)

REACTIONS (4)
  - Off label use [Unknown]
  - Overdose [Unknown]
  - Toxicity to various agents [Recovered/Resolved]
  - Product use issue [Unknown]
